FAERS Safety Report 14531419 (Version 1)
Quarter: 2018Q1

REPORT INFORMATION
  Report Type: Spontaneous
  Country: US (occurrence: US)
  Receive Date: 20180214
  Receipt Date: 20180214
  Transmission Date: 20180509
  Serious: Yes (Other)
  Sender: FDA-Public Use
  Company Number: US-BAYER-2018-029620

PATIENT
  Sex: Female

DRUGS (2)
  1. MIRENA [Suspect]
     Active Substance: LEVONORGESTREL
  2. MIRENA [Suspect]
     Active Substance: LEVONORGESTREL
     Dosage: 20 MCG/24HR, CONT
     Route: 015
     Dates: start: 20141201

REACTIONS (8)
  - Idiopathic intracranial hypertension [None]
  - Tinnitus [None]
  - Pyrexia [None]
  - Neck pain [None]
  - Vomiting [None]
  - Back pain [None]
  - Headache [None]
  - Musculoskeletal pain [None]

NARRATIVE: CASE EVENT DATE: 20151229
